FAERS Safety Report 4323147-7 (Version None)
Quarter: 2004Q1

REPORT INFORMATION
  Report Type: 
  Country: None (occurrence: None)
  Receive Date: 20040322
  Receipt Date: 20040305
  Transmission Date: 20041129
  Serious: Yes (Death)
  Sender: FDA-Public Use
  Company Number: S04-USA-00728-01

PATIENT
  Age: 35 Year
  Sex: Male

DRUGS (6)
  1. CELEXA [Suspect]
     Indication: ANXIETY
     Dosage: 20 MG QD PO
     Route: 048
     Dates: start: 20020701, end: 20020807
  2. CELEXA [Suspect]
     Indication: DEPRESSION
     Dosage: 20 MG QD PO
     Route: 048
     Dates: start: 20020701, end: 20020807
  3. BUSPAR [Suspect]
     Indication: ANXIETY
     Dosage: 10 MG TID
     Dates: end: 20020807
  4. BUSPAR [Suspect]
     Indication: DEPRESSION
     Dosage: 10 MG TID
     Dates: end: 20020807
  5. TYLENOL (CAPLET) [Concomitant]
  6. BACTRIM DS [Concomitant]

REACTIONS (11)
  - ANHEDONIA [None]
  - ANXIETY [None]
  - COMPLETED SUICIDE [None]
  - CONDITION AGGRAVATED [None]
  - CONFUSIONAL STATE [None]
  - DEPRESSION [None]
  - GUN SHOT WOUND [None]
  - HAEMOTHORAX [None]
  - LUNG INJURY [None]
  - OBSESSIVE THOUGHTS [None]
  - PERICARDIAL HAEMORRHAGE [None]
